FAERS Safety Report 9287832 (Version 1)
Quarter: 2013Q2

REPORT INFORMATION
  Report Type: Spontaneous
  Country: US (occurrence: US)
  Receive Date: 20130514
  Receipt Date: 20130514
  Transmission Date: 20140414
  Serious: No
  Sender: FDA-Public Use
  Company Number: US-PFIZER INC-2013144996

PATIENT
  Sex: Female

DRUGS (3)
  1. LEVOXYL [Suspect]
     Indication: HYPOTHYROIDISM
     Dosage: 25 UG BY SPLITTING THE 50 MCG TABLET INTO HALF, 1X/DAY
     Route: 048
  2. LEVOXYL [Suspect]
     Dosage: 50 UG, 1X/DAY
     Route: 048
     Dates: end: 2013
  3. SYNTHROID [Suspect]
     Indication: HYPOTHYROIDISM
     Dosage: UNK
     Dates: start: 2013

REACTIONS (2)
  - Feeling abnormal [Unknown]
  - Drug ineffective [Unknown]
